FAERS Safety Report 9447909 (Version 1)
Quarter: 2013Q3

REPORT INFORMATION
  Report Type: Spontaneous
  Country: US (occurrence: US)
  Receive Date: 20130808
  Receipt Date: 20130808
  Transmission Date: 20140515
  Serious: Yes (Other)
  Sender: FDA-Public Use
  Company Number: PHHY2013US083403

PATIENT
  Age: 6 Year
  Sex: Female
  Weight: 16.7 kg

DRUGS (2)
  1. METHYLPHENIDATE [Suspect]
     Indication: ACQUIRED EPILEPTIC APHASIA
     Dosage: 10 MG, QD
  2. DEPAKOTE [Interacting]
     Indication: ACQUIRED EPILEPTIC APHASIA
     Dosage: 20 MG/KG, PER DAY

REACTIONS (6)
  - Tic [Recovered/Resolved]
  - Abnormal behaviour [Recovered/Resolved]
  - Agitation [Recovered/Resolved]
  - Irritability [Recovered/Resolved]
  - Grand mal convulsion [Recovered/Resolved]
  - Drug interaction [Unknown]
